FAERS Safety Report 12156344 (Version 1)
Quarter: 2016Q1

REPORT INFORMATION
  Report Type: Spontaneous
  Country: US (occurrence: US)
  Receive Date: 20160307
  Receipt Date: 20160307
  Transmission Date: 20160526
  Serious: Yes (Other)
  Sender: FDA-Public Use
  Company Number: US-ELI_LILLY_AND_COMPANY-US201602008878

PATIENT
  Age: 42 Year
  Sex: Male

DRUGS (5)
  1. ISOSORBIDE DINITRATE. [Concomitant]
     Active Substance: ISOSORBIDE DINITRATE
  2. POTASSIUM [Concomitant]
     Active Substance: POTASSIUM
  3. LASIX [Concomitant]
     Active Substance: FUROSEMIDE
  4. ASPIRIN                            /00002701/ [Concomitant]
     Active Substance: ASPIRIN
  5. EFFIENT [Suspect]
     Active Substance: PRASUGREL HYDROCHLORIDE
     Indication: IMPLANTABLE DEFIBRILLATOR INSERTION
     Dosage: 10 MG, QD
     Route: 065
     Dates: start: 201506, end: 20151210

REACTIONS (1)
  - Cerebrovascular accident [Recovered/Resolved]

NARRATIVE: CASE EVENT DATE: 20151210
